FAERS Safety Report 8850634 (Version 1)
Quarter: 2012Q4

REPORT INFORMATION
  Report Type: 
  Country: KR (occurrence: KR)
  Receive Date: 20121019
  Receipt Date: 20121019
  Transmission Date: 20130627
  Serious: Yes (Life-Threatening)
  Sender: FDA-Public Use
  Company Number: KR-009507513-1210KOR007748

PATIENT

DRUGS (3)
  1. TEMOZOLOMIDE [Suspect]
     Indication: GLIOBLASTOMA
     Dosage: 150 mg/m2, Cyclical
     Route: 048
  2. TEMOZOLOMIDE [Suspect]
     Dosage: 200 mg/m2, Cyclical
     Route: 048
  3. TEMOZOLOMIDE [Suspect]
     Dosage: 75 mg/m2, qd
     Route: 048

REACTIONS (2)
  - Haematotoxicity [Unknown]
  - Haematotoxicity [Unknown]
